FAERS Safety Report 12046809 (Version 6)
Quarter: 2016Q3

REPORT INFORMATION
  Report Type: Spontaneous
  Country: FR (occurrence: FR)
  Receive Date: 20160209
  Receipt Date: 20160920
  Transmission Date: 20161109
  Serious: Yes (Hospitalization)
  Sender: FDA-Public Use
  Company Number: FR-JNJFOC-20160202247

PATIENT
  Age: 67 Year
  Sex: Male

DRUGS (17)
  1. IMODIUM [Suspect]
     Active Substance: LOPERAMIDE HYDROCHLORIDE
     Indication: DIARRHOEA
     Dosage: ADMINISTERED AFTER EACH WATERY STOOLWITHDRAWN BETWEEN 05-JAN-2016 TO 13-JAN-2016
     Route: 048
     Dates: start: 20151222, end: 201601
  2. SMECTA [Suspect]
     Active Substance: MONTMORILLONITE
     Indication: GASTROINTESTINAL DISORDER
     Dosage: ADMINISTERED AT NOON??WITHDRAWN BETWEEN 05-JAN-2016 TO13-JAN-2016
     Route: 048
     Dates: start: 20151222, end: 201601
  3. IMODIUM [Suspect]
     Active Substance: LOPERAMIDE HYDROCHLORIDE
     Route: 048
  4. TEMODAL [Suspect]
     Active Substance: TEMOZOLOMIDE
     Indication: GLIOBLASTOMA
     Dosage: 16TH COURSE
     Route: 048
     Dates: start: 20151024
  5. TEMODAL [Suspect]
     Active Substance: TEMOZOLOMIDE
     Indication: GLIOBLASTOMA
     Dosage: ADMINISTERED DURING 5 DAYS
     Route: 048
     Dates: start: 20140522
  6. SMECTA [Suspect]
     Active Substance: MONTMORILLONITE
     Indication: GASTROINTESTINAL DISORDER
     Route: 048
     Dates: start: 2016
  7. ROCEPHINE [Suspect]
     Active Substance: CEFTRIAXONE SODIUM
     Indication: DIARRHOEA
     Route: 065
     Dates: end: 20160119
  8. INEGY [Concomitant]
     Active Substance: EZETIMIBE\SIMVASTATIN
     Route: 065
  9. PHLOROGLUCINOL [Suspect]
     Active Substance: PHLOROGLUCINOL
     Indication: GASTROINTESTINAL DISORDER
     Route: 048
     Dates: start: 20151222
  10. FLAGYL [Suspect]
     Active Substance: METRONIDAZOLE\METRONIDAZOLE HYDROCHLORIDE
     Indication: DIARRHOEA
     Route: 065
     Dates: end: 20160119
  11. DIFFU K [Concomitant]
     Active Substance: POTASSIUM CHLORIDE
     Route: 065
  12. INEXIUM [Concomitant]
     Active Substance: ESOMEPRAZOLE
     Route: 065
  13. PREDNISOLONE. [Suspect]
     Active Substance: PREDNISOLONE
     Indication: PRODUCT USED FOR UNKNOWN INDICATION
     Route: 048
  14. ZOPHREN [Suspect]
     Active Substance: ONDANSETRON
     Indication: VOMITING
     Route: 048
  15. TEMODAL [Suspect]
     Active Substance: TEMOZOLOMIDE
     Indication: GLIOBLASTOMA
     Dosage: 17TH COURSE
     Route: 048
     Dates: start: 20151222, end: 20160202
  16. BACTRIM [Suspect]
     Active Substance: SULFAMETHOXAZOLE\TRIMETHOPRIM
     Indication: PRODUCT USED FOR UNKNOWN INDICATION
     Route: 048
  17. LERCAN [Concomitant]
     Active Substance: LERCANIDIPINE
     Route: 065

REACTIONS (3)
  - Gastrointestinal disorder [Not Recovered/Not Resolved]
  - Intussusception [Recovered/Resolved]
  - Drug ineffective [Recovered/Resolved]

NARRATIVE: CASE EVENT DATE: 20160105
